FAERS Safety Report 8235308-5 (Version None)
Quarter: 2012Q1

REPORT INFORMATION
  Report Type: 
  Country: None (occurrence: None)
  Receive Date: 20120326
  Receipt Date: 20120323
  Transmission Date: 20120608
  Serious: Yes (Other)
  Sender: FDA-Public Use
  Company Number: US-PFIZER INC-2012076057

PATIENT
  Sex: Female
  Weight: 58.957 kg

DRUGS (2)
  1. PREDNISONE [Concomitant]
     Indication: ARTHRITIS
     Dosage: UNK
  2. LIPITOR [Suspect]
     Indication: BLOOD CHOLESTEROL INCREASED
     Dosage: UNK

REACTIONS (4)
  - CORONARY ARTERY OCCLUSION [None]
  - OSTEOPOROTIC FRACTURE [None]
  - BREAST CANCER FEMALE [None]
  - MYALGIA [None]
